FAERS Safety Report 10825428 (Version 1)
Quarter: 2015Q1

REPORT INFORMATION
  Report Type: Spontaneous
  Country: DE (occurrence: None)
  Receive Date: 20150213
  Receipt Date: 20150213
  Transmission Date: 20150721
  Serious: Yes (Other)
  Sender: FDA-Public Use
  Company Number: 2014BI044568

PATIENT
  Age: 33 Year
  Sex: Female
  Weight: 51 kg

DRUGS (2)
  1. AVONEX [Suspect]
     Active Substance: INTERFERON BETA-1A
     Indication: RELAPSING-REMITTING MULTIPLE SCLEROSIS
     Route: 030
     Dates: start: 20120101, end: 20140315
  2. NEURANIDAL [Concomitant]

REACTIONS (5)
  - Caesarean section [None]
  - Gestational diabetes [None]
  - Pregnancy [None]
  - Exposure during pregnancy [None]
  - Prolonged labour [None]

NARRATIVE: CASE EVENT DATE: 201411
